FAERS Safety Report 14903559 (Version 2)
Quarter: 2018Q2

REPORT INFORMATION
  Report Type: Spontaneous
  Country: US (occurrence: US)
  Receive Date: 20180516
  Receipt Date: 20180524
  Transmission Date: 20180711
  Serious: Yes (Other)
  Sender: FDA-Public Use
  Company Number: US-PFIZER INC-2018197484

PATIENT
  Age: 74 Year
  Sex: Male

DRUGS (2)
  1. AMIODARONE HCL [Suspect]
     Active Substance: AMIODARONE HYDROCHLORIDE
     Indication: ATRIAL FIBRILLATION
     Dosage: UNK
     Route: 065
  2. VINPOCETINE [Concomitant]
     Active Substance: VINPOCETINE
     Dosage: UNK

REACTIONS (3)
  - Ventricular tachycardia [Unknown]
  - Ventricular arrhythmia [Unknown]
  - Condition aggravated [Unknown]
